FAERS Safety Report 4651908-3 (Version None)
Quarter: 2005Q2

REPORT INFORMATION
  Report Type: 
  Country: None (occurrence: None)
  Receive Date: 20050502
  Receipt Date: 20050420
  Transmission Date: 20051028
  Serious: Yes (Other)
  Sender: FDA-Public Use
  Company Number: HQWYE371027APR05

PATIENT
  Age: 40 Year
  Sex: Male
  Weight: 63.56 kg

DRUGS (3)
  1. RAPAMUNE [Suspect]
     Indication: PROPHYLAXIS AGAINST TRANSPLANT REJECTION
     Dosage: 5 M G 1X PER 1 DAY, ORAL
     Route: 048
     Dates: start: 20050418
  2. CORTICOSTEROID NOS (CORTICOSTEROID NOS) [Suspect]
     Dosage: ORAL
     Route: 048
  3. TACROLIMUS (TACROLIMUS) [Suspect]
     Dosage: ORAL
     Route: 048

REACTIONS (5)
  - EJECTION FRACTION DECREASED [None]
  - INTRACARDIAC THROMBUS [None]
  - MYOCARDIAL INFARCTION [None]
  - OXYGEN SATURATION DECREASED [None]
  - POST PROCEDURAL COMPLICATION [None]
